FAERS Safety Report 5251150-1 (Version None)
Quarter: 2007Q1

REPORT INFORMATION
  Report Type: 
  Country: None (occurrence: None)
  Receive Date: 20070228
  Receipt Date: 20060905
  Transmission Date: 20070707
  Serious: No
  Sender: FDA-Public Use
  Company Number: US-GLAXOSMITHKLINE-A0618989A

PATIENT
  Age: 32 Year
  Sex: Female

DRUGS (1)
  1. LAMICTAL [Suspect]
     Indication: DRUG USE FOR UNKNOWN INDICATION
     Dosage: 25MG PER DAY
     Route: 048
     Dates: start: 20060801

REACTIONS (10)
  - BEDRIDDEN [None]
  - DIZZINESS [None]
  - FEELING ABNORMAL [None]
  - NECK PAIN [None]
  - PAIN [None]
  - PRURITUS [None]
  - PYREXIA [None]
  - RASH [None]
  - SWELLING [None]
  - SWELLING FACE [None]
